FAERS Safety Report 8615047-9 (Version None)
Quarter: 2012Q3

REPORT INFORMATION
  Report Type: 
  Country: None (occurrence: None)
  Receive Date: 20120823
  Receipt Date: 20120811
  Transmission Date: 20120928
  Serious: Yes (Other)
  Sender: FDA-Public Use
  Company Number: BE-CELGENEUS-013-21880-12063545

PATIENT
  Sex: Male

DRUGS (8)
  1. ARANESP [Concomitant]
     Route: 065
  2. ASPIRIN [Concomitant]
     Route: 065
  3. REVLIMID [Suspect]
     Dosage: 5 MILLIGRAM
     Route: 048
     Dates: start: 20120101
  4. INSULIN [Concomitant]
     Indication: TYPE 2 DIABETES MELLITUS
     Route: 065
     Dates: start: 19970101
  5. ALLOPURINOL [Concomitant]
     Route: 065
  6. REVLIMID [Suspect]
     Dosage: 10 MILLIGRAM
     Route: 048
     Dates: start: 20110810, end: 20111201
  7. REVLIMID [Suspect]
     Dosage: 5 MILLIGRAM
     Route: 048
     Dates: start: 20111201
  8. COLCHICINE [Concomitant]
     Route: 065

REACTIONS (1)
  - METASTASES TO BONE [None]
